FAERS Safety Report 4350610-5 (Version None)
Quarter: 2004Q2

REPORT INFORMATION
  Report Type: 
  Country: None (occurrence: None)
  Receive Date: 20040429
  Receipt Date: 20040415
  Transmission Date: 20050107
  Serious: Yes (Life-Threatening, Other)
  Sender: FDA-Public Use
  Company Number: 2004S1001096

PATIENT
  Age: 48 Year
  Sex: Female

DRUGS (3)
  1. VERAPAMIL HYDROCHLORIDE [Suspect]
     Dates: start: 20040106, end: 20040311
  2. METFORMIN HCL [Concomitant]
  3. IRBESARTAN [Concomitant]

REACTIONS (2)
  - ANAPHYLACTIC REACTION [None]
  - PARAESTHESIA ORAL [None]
